FAERS Safety Report 4307231-X (Version None)
Quarter: 2004Q1

REPORT INFORMATION
  Report Type: 
  Country: None (occurrence: None)
  Receive Date: 20040225
  Receipt Date: 20040217
  Transmission Date: 20041129
  Serious: Yes (Hospitalization)
  Sender: FDA-Public Use
  Company Number: 200402306

PATIENT
  Age: 79 Year
  Sex: Male
  Weight: 79 kg

DRUGS (1)
  1. TYLENOL [Suspect]
     Indication: PYREXIA
     Dosage: 750 MG ONCE
     Dates: start: 20040202, end: 20040202

REACTIONS (2)
  - ERYSIPELAS [None]
  - HYPOTENSION [None]
